FAERS Safety Report 11838667 (Version 1)
Quarter: 2015Q4

REPORT INFORMATION
  Report Type: Spontaneous
  Country: US (occurrence: US)
  Receive Date: 20151215
  Receipt Date: 20151215
  Transmission Date: 20160305
  Serious: Yes (Other)
  Sender: FDA-Public Use
  Company Number: US-SA-2015SA037898

PATIENT
  Sex: Female
  Weight: 51.1 kg

DRUGS (12)
  1. ASPIRIN. [Concomitant]
     Active Substance: ASPIRIN
     Route: 048
  2. LOMOTIL [Concomitant]
     Active Substance: ATROPINE SULFATE\DIPHENOXYLATE HYDROCHLORIDE
     Route: 048
  3. ALIGN [Concomitant]
     Active Substance: BIFIDOBACTERIUM LONGUM SUBSP. INFANTIS
     Route: 048
  4. COLACE [Concomitant]
     Active Substance: DOCUSATE SODIUM
     Dosage: OF 100MG
     Route: 048
     Dates: start: 20121115
  5. OMEPRAZOLE. [Concomitant]
     Active Substance: OMEPRAZOLE
     Dosage: FORM: CAPSULE DELAYED RELEASE
     Route: 048
  6. GEMZAR [Suspect]
     Active Substance: GEMCITABINE HYDROCHLORIDE
     Indication: LIPOSARCOMA
     Route: 065
  7. TUMS [Concomitant]
     Active Substance: CALCIUM CARBONATE
     Dosage: FREQUENCY: BID, PRN
     Route: 048
  8. FENTANYL. [Concomitant]
     Active Substance: FENTANYL
     Dosage: 1 (50 MCGLHR) PATCH 72 HR TRANSDERMAL
     Route: 062
  9. TAXOTERE [Suspect]
     Active Substance: DOCETAXEL
     Indication: LIPOSARCOMA
     Route: 065
     Dates: start: 2012
  10. ADVIL [Concomitant]
     Active Substance: IBUPROFEN
     Route: 048
  11. SYNTHROID [Concomitant]
     Active Substance: LEVOTHYROXINE SODIUM
     Route: 048
  12. VITAMIN D [Concomitant]
     Active Substance: CHOLECALCIFEROL
     Dosage: DOSE:1000 UNIT(S)
     Route: 048

REACTIONS (1)
  - Liposarcoma recurrent [Recovered/Resolved]

NARRATIVE: CASE EVENT DATE: 2014
